FAERS Safety Report 24394427 (Version 1)
Quarter: 2024Q4

REPORT INFORMATION
  Report Type: Spontaneous
  Country: US (occurrence: US)
  Receive Date: 20241004
  Receipt Date: 20241004
  Transmission Date: 20250115
  Serious: Yes (Other)
  Sender: AUROBINDO
  Company Number: US-AUROBINDO-AUR-APL-2024-024405

PATIENT
  Age: 7 Decade
  Sex: Female

DRUGS (8)
  1. FLUOROURACIL [Suspect]
     Active Substance: FLUOROURACIL
     Indication: Mixed hepatocellular cholangiocarcinoma
     Dosage: 400 MG/M2 2  INTRAVENOUS BOLUS PLUS 1200MG/M2 /DAY IVCI Q28 DAYS
     Route: 042
  2. OXALIPLATIN [Suspect]
     Active Substance: OXALIPLATIN
     Indication: Mixed hepatocellular cholangiocarcinoma
     Dosage: 85 MG/M2
     Route: 065
  3. CISPLATIN [Suspect]
     Active Substance: CISPLATIN
     Indication: Mixed hepatocellular cholangiocarcinoma
     Dosage: 25/M2 ON DAYS 1 AND 8 Q21 DAYS
     Route: 065
  4. GEMCITABINE [Suspect]
     Active Substance: GEMCITABINE
     Indication: Mixed hepatocellular cholangiocarcinoma
     Dosage: 1000 MG/M2
     Route: 065
  5. LEUCOVORIN [Suspect]
     Active Substance: LEUCOVORIN\LEUCOVORIN CALCIUM
     Indication: Mixed hepatocellular cholangiocarcinoma
     Dosage: 400 MG/M2
     Route: 065
  6. LEVOLEUCOVORIN [Suspect]
     Active Substance: LEVOLEUCOVORIN
     Indication: Mixed hepatocellular cholangiocarcinoma
     Dosage: UNK
     Route: 065
  7. NIVOLUMAB [Concomitant]
     Active Substance: NIVOLUMAB
     Indication: Mixed hepatocellular cholangiocarcinoma
     Dosage: 3 MILLIGRAM/KILOGRAM (EVERY 2 WEEKS)
     Route: 065
  8. IPILIMUMAB [Concomitant]
     Active Substance: IPILIMUMAB
     Indication: Mixed hepatocellular cholangiocarcinoma
     Dosage: 1 MILLIGRAM/KILOGRAM (EVERY 3 WEEKS FOR FOUR CYCLES)
     Route: 065

REACTIONS (2)
  - Drug ineffective [Unknown]
  - Therapy partial responder [Unknown]
